FAERS Safety Report 9482121 (Version 4)
Quarter: 2014Q1

REPORT INFORMATION
  Report Type: Spontaneous
  Country: GB (occurrence: GB)
  Receive Date: 20130828
  Receipt Date: 20140120
  Transmission Date: 20141002
  Serious: Yes (Other)
  Sender: FDA-Public Use
  Company Number: PHFR2013GB004876

PATIENT
  Sex: Male

DRUGS (8)
  1. CLOZARIL [Suspect]
     Indication: SCHIZOPHRENIA
     Dosage: UNK
     Route: 048
     Dates: start: 20130815, end: 20130816
  2. CLOZARIL [Suspect]
     Dosage: 350 MG, UNK
     Route: 048
  3. CLOZARIL [Suspect]
     Dosage: UNK
     Dates: start: 20130816
  4. CLOZARIL [Suspect]
     Dosage: 12.5 MG, UNK
  5. AMISULPRIDE [Concomitant]
     Indication: SCHIZOPHRENIA, PARANOID TYPE
     Dosage: 800 MG, UNK
     Route: 048
  6. TRIHEXYPHENIDYL [Concomitant]
     Dosage: 15 MG, UNK
     Route: 048
  7. TOPIRAMATE [Concomitant]
     Indication: SCHIZOPHRENIA, PARANOID TYPE
     Dosage: 100 MG, UNK
     Route: 048
  8. TOPIRAMATE [Concomitant]
     Indication: MOOD SWINGS

REACTIONS (4)
  - Circulatory collapse [Recovered/Resolved]
  - Pulmonary embolism [Recovered/Resolved]
  - Mental impairment [Recovering/Resolving]
  - Overweight [Not Recovered/Not Resolved]
